FAERS Safety Report 19629719 (Version 2)
Quarter: 2021Q3

REPORT INFORMATION
  Report Type: Spontaneous
  Country: JP (occurrence: JP)
  Receive Date: 20210729
  Receipt Date: 20210910
  Transmission Date: 20211014
  Serious: Yes (Death, Other)
  Sender: FDA-Public Use
  Company Number: JP-EXELIXIS-CABO-21042747

PATIENT
  Age: 57 Year
  Sex: Male

DRUGS (1)
  1. CABOMETYX [Suspect]
     Active Substance: CABOZANTINIB S-MALATE
     Indication: HEPATOCELLULAR CARCINOMA
     Dosage: 60 MG
     Route: 048
     Dates: start: 20210315, end: 20210322

REACTIONS (3)
  - Hepatic function abnormal [Recovered/Resolved]
  - Death [Fatal]
  - Jaundice [Recovered/Resolved]

NARRATIVE: CASE EVENT DATE: 20210322
